FAERS Safety Report 6077802-1 (Version None)
Quarter: 2009Q1

REPORT INFORMATION
  Report Type: 
  Country: None (occurrence: None)
  Receive Date: 20090213
  Receipt Date: 20090206
  Transmission Date: 20090719
  Serious: Yes (Disabling, Congenital Anomaly, Other)
  Sender: FDA-Public Use
  Company Number: US-PFIZER INC-2009168864

PATIENT
  Sex: Male

DRUGS (3)
  1. LIPITOR [Suspect]
  2. SITAGLIPTIN [Suspect]
  3. PLAVIX [Suspect]

REACTIONS (3)
  - DEPRESSION [None]
  - MULTIPLE FRACTURES [None]
  - PARALYSIS [None]
